FAERS Safety Report 7170192-2 (Version None)
Quarter: 2010Q4

REPORT INFORMATION
  Report Type: 
  Country: None (occurrence: None)
  Receive Date: 20101217
  Receipt Date: 20101215
  Transmission Date: 20110411
  Serious: Yes (Hospitalization)
  Sender: FDA-Public Use
  Company Number: JP-ROCHE-683954

PATIENT
  Sex: Female

DRUGS (7)
  1. XELODA [Suspect]
     Indication: LARGE INTESTINE CARCINOMA
     Route: 048
     Dates: start: 20090930, end: 20091013
  2. XELODA [Interacting]
     Route: 048
     Dates: start: 20091021, end: 20091103
  3. ALEVIATIN [Interacting]
     Indication: LARGE INTESTINE CARCINOMA
     Dosage: DIVIDED INTO 2 DOSES
     Route: 048
  4. DEPAKENE [Concomitant]
     Route: 048
  5. DEPAKENE [Concomitant]
     Route: 048
  6. ALMARL [Concomitant]
     Route: 048
  7. MAGLAX [Concomitant]
     Route: 048

REACTIONS (14)
  - ANTICONVULSANT DRUG LEVEL INCREASED [None]
  - COORDINATION ABNORMAL [None]
  - DIZZINESS [None]
  - DRUG INTERACTION [None]
  - DRUG LEVEL INCREASED [None]
  - DYSARTHRIA [None]
  - GAIT DISTURBANCE [None]
  - HYPOAESTHESIA [None]
  - INJURY [None]
  - METASTASES TO LIVER [None]
  - NYSTAGMUS [None]
  - THERAPEUTIC AGENT TOXICITY [None]
  - TREMOR [None]
  - VERTIGO [None]
